FAERS Safety Report 4364644-8 (Version None)
Quarter: 2004Q2

REPORT INFORMATION
  Report Type: 
  Country: None (occurrence: None)
  Receive Date: 20040521
  Receipt Date: 20040505
  Transmission Date: 20050107
  Serious: Yes (Other)
  Sender: FDA-Public Use
  Company Number: US_0404102032

PATIENT
  Age: 85 Year
  Sex: Female

DRUGS (8)
  1. EVISTA [Suspect]
     Indication: OSTEOPOROSIS
     Dates: start: 20030121, end: 20030616
  2. FOSAMAX [Concomitant]
  3. ACTONEL (RISENDRONATE SODIUM) [Concomitant]
  4. MIACALCIN [Concomitant]
  5. ATIVAN [Concomitant]
  6. COUMADIN [Concomitant]
  7. ATROVENT [Concomitant]
  8. HYDROCODONE [Concomitant]

REACTIONS (2)
  - BODY HEIGHT DECREASED [None]
  - FRACTURE [None]
